FAERS Safety Report 18104681 (Version 4)
Quarter: 2020Q3

REPORT INFORMATION
  Report Type: Report from Study
  Country: US (occurrence: US)
  Receive Date: 20200803
  Receipt Date: 20200821
  Transmission Date: 20201103
  Serious: Yes (Death, Hospitalization, Other)
  Sender: FDA-Public Use
  Company Number: US-TAKEDA-2019TUS043911

PATIENT
  Sex: Female
  Weight: 52 kg

DRUGS (3)
  1. PONATINIB [Suspect]
     Active Substance: PONATINIB
     Indication: CHRONIC MYELOID LEUKAEMIA
     Dosage: 45 MILLIGRAM, QD
     Route: 048
  2. DECITABINE. [Suspect]
     Active Substance: DECITABINE
     Indication: PRODUCT USED FOR UNKNOWN INDICATION
     Dosage: UNK
     Route: 065
  3. PONATINIB [Suspect]
     Active Substance: PONATINIB
     Dosage: 30 MILLIGRAM, QD
     Route: 065

REACTIONS (10)
  - Respiratory failure [Fatal]
  - Philadelphia chromosome positive [Unknown]
  - Acute myeloid leukaemia [Fatal]
  - Vein collapse [Unknown]
  - Pneumonia fungal [Fatal]
  - Atrial fibrillation [Fatal]
  - Pulmonary oedema [Fatal]
  - Weight decreased [Unknown]
  - Neutropenia [Fatal]
  - Cough [Not Recovered/Not Resolved]
